FAERS Safety Report 7924625-1 (Version None)
Quarter: 2011Q4

REPORT INFORMATION
  Report Type: 
  Country: None (occurrence: None)
  Receive Date: 20111117
  Receipt Date: 20110324
  Transmission Date: 20120403
  Serious: No
  Sender: FDA-Public Use
  Company Number: US-AMGEN-USASP2011015956

PATIENT
  Age: 48 Year
  Sex: Female

DRUGS (1)
  1. ENBREL [Suspect]
     Indication: ANKYLOSING SPONDYLITIS
     Dates: start: 20041004

REACTIONS (4)
  - INJECTION SITE HAEMATOMA [None]
  - BRONCHITIS [None]
  - PNEUMONIA [None]
  - INJECTION SITE PAIN [None]
